FAERS Safety Report 25792770 (Version 1)
Quarter: 2025Q3

REPORT INFORMATION
  Report Type: Spontaneous
  Country: CN (occurrence: CN)
  Receive Date: 20250911
  Receipt Date: 20250911
  Transmission Date: 20251021
  Serious: Yes (Hospitalization)
  Sender: NOVO NORDISK
  Company Number: CN-NOVOPROD-1515609

PATIENT
  Age: 65 Year
  Sex: Male
  Weight: 55 kg

DRUGS (13)
  1. INSULIN ASPART [Suspect]
     Active Substance: INSULIN ASPART
     Indication: Type 2 diabetes mellitus
     Route: 058
     Dates: start: 202106
  2. INSULIN ASPART [Suspect]
     Active Substance: INSULIN ASPART
     Dates: start: 202106, end: 202208
  3. INSULIN ASPART [Suspect]
     Active Substance: INSULIN ASPART
  4. INSULIN ASPART [Suspect]
     Active Substance: INSULIN ASPART
     Route: 058
     Dates: start: 20231103, end: 202311
  5. ACARBOSE [Concomitant]
     Active Substance: ACARBOSE
     Route: 048
  6. ACARBOSE [Concomitant]
     Active Substance: ACARBOSE
     Indication: Type 2 diabetes mellitus
     Dosage: 50 MG, TID
     Route: 048
  7. METHYLCOBALAMIN [Concomitant]
     Active Substance: METHYLCOBALAMIN
     Indication: Type 2 diabetes mellitus
     Dosage: 0.5 MG, TID
  8. ATORVASTATIN CALCIUM [Concomitant]
     Active Substance: ATORVASTATIN CALCIUM
     Indication: Type 2 diabetes mellitus
     Dosage: 20 MG, QD
  9. NOVOLIN R [Suspect]
     Active Substance: INSULIN HUMAN
     Indication: Type 2 diabetes mellitus
     Dates: start: 202106, end: 202208
  10. DESONIDE [Concomitant]
     Active Substance: DESONIDE
  11. BILASTINE [Concomitant]
     Active Substance: BILASTINE
  12. MUPIROCIN [Concomitant]
     Active Substance: MUPIROCIN
  13. ALPHA LIPOIC ACID [Concomitant]
     Active Substance: .ALPHA.-LIPOIC ACID

REACTIONS (1)
  - Insulin autoimmune syndrome [Unknown]

NARRATIVE: CASE EVENT DATE: 20231109
